FAERS Safety Report 9471319 (Version 2)
Quarter: 2013Q4

REPORT INFORMATION
  Report Type: Spontaneous
  Country: GB (occurrence: GB)
  Receive Date: 20130822
  Receipt Date: 20131121
  Transmission Date: 20140711
  Serious: Yes (Hospitalization, Other)
  Sender: FDA-Public Use
  Company Number: GB-PFIZER INC-2013240933

PATIENT
  Age: 24 Year
  Sex: Male

DRUGS (4)
  1. PREGABALIN [Suspect]
     Dosage: UNK
     Route: 048
  2. TRAMADOL HCL [Suspect]
     Dosage: UNK
     Route: 048
  3. ZOMORPH [Suspect]
     Dosage: UNK
     Route: 048
  4. DIAZEPAM [Suspect]
     Dosage: UNK
     Route: 048

REACTIONS (3)
  - Intentional overdose [Recovered/Resolved]
  - Convulsion [Recovered/Resolved]
  - Coma scale abnormal [Unknown]
